FAERS Safety Report 7365574-X (Version None)
Quarter: 2011Q1

REPORT INFORMATION
  Report Type: 
  Country: None (occurrence: None)
  Receive Date: 20110316
  Receipt Date: 20110316
  Transmission Date: 20110831
  Serious: No
  Sender: FDA-Public Use
  Company Number: None

PATIENT
  Age: 53 Year
  Sex: Male
  Weight: 154.223 kg

DRUGS (1)
  1. GABAPENTIN [Suspect]
     Indication: NEURALGIA
     Dosage: 900MG TID PO
     Route: 048
     Dates: start: 20100414, end: 20101111

REACTIONS (2)
  - PRODUCT SUBSTITUTION ISSUE [None]
  - HEADACHE [None]
